FAERS Safety Report 19278690 (Version 1)
Quarter: 2021Q2

REPORT INFORMATION
  Report Type: Spontaneous
  Country: US (occurrence: US)
  Receive Date: 20210520
  Receipt Date: 20210520
  Transmission Date: 20210717
  Serious: Yes (Other)
  Sender: FDA-Public Use
  Company Number: None

PATIENT
  Sex: Male

DRUGS (2)
  1. TIMOLOL. [Suspect]
     Active Substance: TIMOLOL
  2. ZAP EYEDROPS (GATIFLOXACIN) [Suspect]
     Active Substance: GATIFLOXACIN

REACTIONS (3)
  - Ocular hyperaemia [None]
  - Lacrimation increased [None]
  - Eye pruritus [None]
